FAERS Safety Report 19941181 (Version 1)
Quarter: 2021Q4

REPORT INFORMATION
  Report Type: Spontaneous
  Country: US (occurrence: US)
  Receive Date: 20211012
  Receipt Date: 20211012
  Transmission Date: 20220303
  Serious: Yes (Hospitalization)
  Sender: FDA-Public Use
  Company Number: US-SUN PHARMACEUTICAL INDUSTRIES LTD-2021R1-313541

PATIENT
  Age: 27 Year
  Sex: Female

DRUGS (1)
  1. TIZANIDINE [Suspect]
     Active Substance: TIZANIDINE
     Indication: Product used for unknown indication
     Dosage: 4 MG
     Route: 065

REACTIONS (5)
  - Overdose [Unknown]
  - Bradycardia [Recovered/Resolved]
  - Mental status changes [Unknown]
  - Hypertension [Unknown]
  - Hyperglycaemia [Recovered/Resolved]
